FAERS Safety Report 4693376-1 (Version None)
Quarter: 2005Q2

REPORT INFORMATION
  Report Type: 
  Country: None (occurrence: None)
  Receive Date: 20050617
  Receipt Date: 20050608
  Transmission Date: 20051028
  Serious: Yes (Other)
  Sender: FDA-Public Use
  Company Number: PHBS2005GB08487

PATIENT
  Sex: Male

DRUGS (3)
  1. NASOGASTRIC TUBE [Concomitant]
     Route: 065
  2. OCTREOTIDE ACETATE [Suspect]
     Indication: CHYLOTHORAX
     Dosage: 2 UG/KG/HOUR
     Route: 042
  3. OCTREOTIDE ACETATE [Suspect]
     Dosage: 4 UG/KG/HOUR
     Route: 042

REACTIONS (10)
  - ABDOMINAL DISTENSION [None]
  - BLOOD LACTIC ACID INCREASED [None]
  - C-REACTIVE PROTEIN INCREASED [None]
  - HAEMATOCHEZIA [None]
  - NECROTISING COLITIS [None]
  - NEUTROPENIA [None]
  - PNEUMATOSIS CYSTOIDES INTESTINALIS [None]
  - PYREXIA [None]
  - THROMBOCYTOPENIA [None]
  - VOMITING [None]
